FAERS Safety Report 11981546 (Version 2)
Quarter: 2016Q2

REPORT INFORMATION
  Report Type: Spontaneous
  Country: US (occurrence: US)
  Receive Date: 20160130
  Receipt Date: 20160421
  Transmission Date: 20160815
  Serious: Yes (Hospitalization, Disabling, Other)
  Sender: FDA-Public Use
  Company Number: US-ENDO PHARMACEUTICALS INC.-2016-000764

PATIENT
  Age: 64 Year
  Sex: Male
  Weight: 102.15 kg

DRUGS (2)
  1. NIASPAN [Concomitant]
     Active Substance: NIACIN
     Indication: CARDIAC DISORDER
     Route: 065
     Dates: start: 200308, end: 201203
  2. TESTIM [Suspect]
     Active Substance: TESTOSTERONE
     Indication: ANDROGEN REPLACEMENT THERAPY
     Route: 062
     Dates: start: 200405, end: 201003

REACTIONS (4)
  - Prostate cancer [Unknown]
  - Arteriosclerosis coronary artery [Not Recovered/Not Resolved]
  - Orchitis [Unknown]
  - Acute myocardial infarction [Not Recovered/Not Resolved]

NARRATIVE: CASE EVENT DATE: 20050331
